FAERS Safety Report 7230998-8 (Version None)
Quarter: 2011Q1

REPORT INFORMATION
  Report Type: 
  Country: None (occurrence: None)
  Receive Date: 20110118
  Receipt Date: 20110110
  Transmission Date: 20110831
  Serious: Yes (Other)
  Sender: FDA-Public Use
  Company Number: DE-ROCHE-752170

PATIENT

DRUGS (8)
  1. ETOPOSIDE [Suspect]
     Dosage: STANDARD DOSE.
     Route: 065
  2. ETOPOSIDE [Suspect]
     Dosage: DAY 1-3, HIGH DOSE.
     Route: 065
  3. BEVACIZUMAB [Suspect]
     Dosage: ON DAY 1
     Route: 065
  4. CARBOPLATIN [Suspect]
     Dosage: STANDARD DOSE.
     Route: 065
  5. NEUPOGEN [Concomitant]
     Dosage: PEGFILGRASTIM OR FILGRASTIM
  6. IFOSFAMIDE [Suspect]
     Dosage: ON DAYS 1-3, HIGH DOSE.
     Route: 065
  7. IFOSFAMIDE [Suspect]
     Dosage: STANDARD DOSE.
     Route: 065
  8. CARBOPLATIN [Suspect]
     Dosage: DAY 1-3, HIGH DOSE.
     Route: 065

REACTIONS (11)
  - DEEP VEIN THROMBOSIS [None]
  - THROMBOCYTOPENIA [None]
  - LEUKOPENIA [None]
  - NAUSEA [None]
  - ASTHENIA [None]
  - ENCEPHALOPATHY [None]
  - NEUROPATHY PERIPHERAL [None]
  - ANAEMIA [None]
  - FEBRILE NEUTROPENIA [None]
  - MUCOSAL INFLAMMATION [None]
  - VOMITING [None]
